FAERS Safety Report 12498703 (Version 1)
Quarter: 2016Q2

REPORT INFORMATION
  Report Type: Spontaneous
  Country: US (occurrence: None)
  Receive Date: 20160624
  Receipt Date: 20160624
  Transmission Date: 20160815
  Serious: No
  Sender: FDA-Public Use
  Company Number: None

PATIENT
  Age: 28 Year
  Sex: Female
  Weight: 55.34 kg

DRUGS (10)
  1. ENSKYCE [Suspect]
     Active Substance: DESOGESTREL\ETHINYL ESTRADIOL
     Indication: MENSTRUAL DISORDER
     Route: 048
     Dates: start: 20160518, end: 20160622
  2. TYLENOL [Concomitant]
     Active Substance: ACETAMINOPHEN
  3. ENSKYCE [Suspect]
     Active Substance: DESOGESTREL\ETHINYL ESTRADIOL
     Indication: CONTRACEPTION
     Route: 048
     Dates: start: 20160518, end: 20160622
  4. ASTELIN [Concomitant]
     Active Substance: AZELASTINE HYDROCHLORIDE
  5. ADVIL [Concomitant]
     Active Substance: IBUPROFEN
  6. TUMS [Concomitant]
     Active Substance: CALCIUM CARBONATE
  7. SIMETHICONE (DIMETHICONE) [Concomitant]
     Active Substance: DIMETHICONE
  8. BENADRYL [Concomitant]
     Active Substance: DIPHENHYDRAMINE HYDROCHLORIDE
  9. BUDESONIDE. [Concomitant]
     Active Substance: BUDESONIDE
  10. PSEUDOEPHEDRINE [Concomitant]
     Active Substance: PSEUDOEPHEDRINE

REACTIONS (4)
  - Metrorrhagia [None]
  - Product substitution issue [None]
  - Product formulation issue [None]
  - Dysmenorrhoea [None]

NARRATIVE: CASE EVENT DATE: 20160622
